FAERS Safety Report 5468208-4 (Version None)
Quarter: 2007Q3

REPORT INFORMATION
  Report Type: 
  Country: None (occurrence: None)
  Receive Date: 20070921
  Receipt Date: 20070907
  Transmission Date: 20080115
  Serious: Yes (Other)
  Sender: FDA-Public Use
  Company Number: SPV1-2007-04146

PATIENT
  Age: 34 Year
  Sex: Female

DRUGS (1)
  1. PENTASA [Suspect]
     Dosage: 3G DAILY, ORAL
     Route: 048

REACTIONS (1)
  - ASTHMA [None]
